FAERS Safety Report 11522616 (Version 1)
Quarter: 2015Q3

REPORT INFORMATION
  Report Type: Spontaneous
  Country: US (occurrence: US)
  Receive Date: 20150918
  Receipt Date: 20150918
  Transmission Date: 20151125
  Serious: No
  Sender: FDA-Public Use
  Company Number: US-ROCHE-730041

PATIENT
  Sex: Male
  Weight: 86.2 kg

DRUGS (9)
  1. RIBAVIRIN. [Suspect]
     Active Substance: RIBAVIRIN
     Indication: HEPATITIS C
     Dosage: DOSE OR AMOUNT REPORTED AS ^1200^
     Route: 048
  2. COZAAR [Concomitant]
     Active Substance: LOSARTAN POTASSIUM
     Route: 065
  3. ROBITUSSIN PRODUCT NOS [Concomitant]
     Route: 065
  4. ATARAX [Concomitant]
     Active Substance: HYDROXYZINE\HYDROXYZINE HYDROCHLORIDE
     Dosage: DRUG NAME WAS REPORTED AS ^ADERAX^
     Route: 065
  5. TESSALON [Concomitant]
     Active Substance: BENZONATATE
     Dosage: DRUG NAME REPORTED AS ^TESSOLON^.
     Route: 065
  6. WELLBUTRIN [Concomitant]
     Active Substance: BUPROPION HYDROCHLORIDE
     Route: 065
  7. TYLENOL [Concomitant]
     Active Substance: ACETAMINOPHEN
     Route: 065
  8. TRAZODONE [Concomitant]
     Active Substance: TRAZODONE HYDROCHLORIDE
     Dosage: DRUG NAME REPORTED AS ^TRASIDONE^.
     Route: 065
  9. PEGASYS [Suspect]
     Active Substance: PEGINTERFERON ALFA-2A
     Indication: HEPATITIS C
     Route: 058

REACTIONS (4)
  - Rash [Not Recovered/Not Resolved]
  - Depression [Not Recovered/Not Resolved]
  - Cough [Not Recovered/Not Resolved]
  - Diarrhoea [Not Recovered/Not Resolved]
